FAERS Safety Report 9630664 (Version 1)
Quarter: 2013Q4

REPORT INFORMATION
  Report Type: Spontaneous
  Country: US (occurrence: None)
  Receive Date: 20131016
  Receipt Date: 20131016
  Transmission Date: 20140711
  Serious: Yes (Life-Threatening, Hospitalization)
  Sender: FDA-Public Use
  Company Number: None

PATIENT
  Age: 15 Year
  Sex: Female
  Weight: 29 kg

DRUGS (1)
  1. VALPROIC ACID [Suspect]
     Indication: CONVULSION
     Dosage: 750 MG, 3 X DAY, GASTROSTOMY TUBE
     Dates: start: 2009, end: 20130924

REACTIONS (4)
  - Pancreatitis [None]
  - Respiratory distress [None]
  - Abdominal distension [None]
  - Oedema [None]
